FAERS Safety Report 5286972-4 (Version None)
Quarter: 2007Q1

REPORT INFORMATION
  Report Type: 
  Country: None (occurrence: None)
  Receive Date: 20070329
  Receipt Date: 20070316
  Transmission Date: 20070707
  Serious: Yes (Other)
  Sender: FDA-Public Use
  Company Number: 033-25

PATIENT
  Age: 77 Year
  Sex: Female

DRUGS (2)
  1. TEVETEN HCT [Suspect]
     Indication: HYPERTENSION
     Dosage: 1 TABLET(S), QD; PO
     Route: 048
     Dates: start: 20070306, end: 20070311
  2. MIALIN [Concomitant]

REACTIONS (5)
  - CONFUSIONAL STATE [None]
  - DIARRHOEA [None]
  - MALAISE [None]
  - NAUSEA [None]
  - SYNCOPE [None]
